FAERS Safety Report 8154394-4 (Version None)
Quarter: 2012Q1

REPORT INFORMATION
  Report Type: 
  Country: None (occurrence: None)
  Receive Date: 20120217
  Receipt Date: 20120217
  Transmission Date: 20120608
  Serious: Yes (Hospitalization)
  Sender: FDA-Public Use
  Company Number: None

PATIENT
  Age: 69 Year
  Sex: Male
  Weight: 103.6 kg

DRUGS (3)
  1. WARFARIN SODIUM [Suspect]
     Indication: DEEP VEIN THROMBOSIS
     Dosage: 3.9 MG EVERY DAY PO
     Route: 048
     Dates: start: 20110803, end: 20120212
  2. WARFARIN SODIUM [Suspect]
     Indication: PULMONARY EMBOLISM
     Dosage: 3.9 MG EVERY DAY PO
     Route: 048
     Dates: start: 20110803, end: 20120212
  3. DOXYCYCLINE [Suspect]
     Indication: BRONCHITIS
     Dosage: 100MG BID PO
     Route: 048
     Dates: start: 20120125, end: 20120204

REACTIONS (3)
  - SWOLLEN TONGUE [None]
  - ECCHYMOSIS [None]
  - TREATMENT NONCOMPLIANCE [None]
